FAERS Safety Report 17402255 (Version 5)
Quarter: 2022Q4

REPORT INFORMATION
  Report Type: Spontaneous
  Country: US (occurrence: US)
  Receive Date: 20200211
  Receipt Date: 20221031
  Transmission Date: 20230113
  Serious: Yes (Hospitalization, Other)
  Sender: FDA-Public Use
  Company Number: US-HIKMA PHARMACEUTICALS USA INC.-US-H14001-20-00484

PATIENT
  Age: 19 Year
  Sex: Male
  Weight: 103.55 kg

DRUGS (15)
  1. METHOTREXATE [Suspect]
     Active Substance: METHOTREXATE
     Indication: B precursor type acute leukaemia
     Route: 042
     Dates: start: 20190218, end: 20191027
  2. METHOTREXATE [Suspect]
     Active Substance: METHOTREXATE
     Route: 042
     Dates: start: 20191029, end: 20191118
  3. METHOTREXATE [Suspect]
     Active Substance: METHOTREXATE
     Route: 042
     Dates: start: 20191126
  4. RUXOLITINIB [Suspect]
     Active Substance: RUXOLITINIB
     Indication: B precursor type acute leukaemia
     Route: 048
     Dates: start: 20190218, end: 20191027
  5. RUXOLITINIB [Suspect]
     Active Substance: RUXOLITINIB
     Route: 048
     Dates: start: 20191029, end: 20191118
  6. RUXOLITINIB [Suspect]
     Active Substance: RUXOLITINIB
     Route: 048
     Dates: start: 20191126
  7. VINCRISTINE [Suspect]
     Active Substance: VINCRISTINE
     Indication: B precursor type acute leukaemia
     Route: 042
     Dates: start: 20190218, end: 20191027
  8. VINCRISTINE [Suspect]
     Active Substance: VINCRISTINE
     Route: 042
     Dates: start: 20191029, end: 20191118
  9. VINCRISTINE [Suspect]
     Active Substance: VINCRISTINE
     Route: 042
     Dates: start: 20191126
  10. PEGASPARGASE [Suspect]
     Active Substance: PEGASPARGASE
     Indication: B precursor type acute leukaemia
     Route: 042
     Dates: start: 20190218, end: 20191027
  11. PEGASPARGASE [Suspect]
     Active Substance: PEGASPARGASE
     Route: 042
     Dates: start: 20191029, end: 20191118
  12. PEGASPARGASE [Suspect]
     Active Substance: PEGASPARGASE
     Route: 042
     Dates: start: 20191126
  13. HYDROHYZINE [Concomitant]
     Indication: Product used for unknown indication
     Dosage: UNKNOWN
     Route: 065
     Dates: start: 20190218
  14. BACTRIM [Concomitant]
     Active Substance: SULFAMETHOXAZOLE\TRIMETHOPRIM
     Indication: Product used for unknown indication
     Dosage: UNKNOWN
     Route: 065
     Dates: start: 20200316
  15. MOTRIN [Concomitant]
     Active Substance: IBUPROFEN
     Indication: Product used for unknown indication
     Dosage: UNKNOWN
     Route: 065
     Dates: start: 20190316

REACTIONS (13)
  - Hepatic mass [Unknown]
  - Colitis [Recovered/Resolved]
  - Hepatic steatosis [Recovered/Resolved]
  - Cholelithiasis [Unknown]
  - Iron overload [Recovered/Resolved]
  - Gamma-glutamyltransferase increased [Recovered/Resolved]
  - Pyelonephritis [Unknown]
  - Thrombocytopenia [Unknown]
  - Pyrexia [Recovered/Resolved]
  - Condition aggravated [Recovered/Resolved]
  - Abdominal pain [Recovered/Resolved]
  - Petechiae [Unknown]
  - Vomiting [Unknown]

NARRATIVE: CASE EVENT DATE: 20191025
